FAERS Safety Report 6339026-X (Version None)
Quarter: 2009Q3

REPORT INFORMATION
  Report Type: 
  Country: None (occurrence: None)
  Receive Date: 20090903
  Receipt Date: 20090722
  Transmission Date: 20100115
  Serious: No
  Sender: FDA-Public Use
  Company Number: GB-BAYER-200929562GPV

PATIENT
  Age: 54 Year
  Sex: Male

DRUGS (4)
  1. ALEVE [Suspect]
     Indication: DRUG USE FOR UNKNOWN INDICATION
     Route: 065
  2. IBUPROFEN [Suspect]
     Indication: DRUG USE FOR UNKNOWN INDICATION
     Route: 065
  3. BONIVA [Suspect]
     Indication: OSTEOPENIA
     Dosage: 150 MG MONTHLY
     Route: 065
     Dates: start: 20090618
  4. VICODIN [Suspect]
     Indication: DRUG USE FOR UNKNOWN INDICATION
     Route: 065

REACTIONS (4)
  - ABDOMINAL DISCOMFORT [None]
  - DIARRHOEA [None]
  - INFLUENZA LIKE ILLNESS [None]
  - NAUSEA [None]
